FAERS Safety Report 18282925 (Version 1)
Quarter: 2020Q3

REPORT INFORMATION
  Report Type: Spontaneous
  Country: US (occurrence: US)
  Receive Date: 20200918
  Receipt Date: 20200918
  Transmission Date: 20201103
  Serious: No
  Sender: FDA-Public Use
  Company Number: None

PATIENT
  Age: 62 Year
  Sex: Male
  Weight: 60.3 kg

DRUGS (20)
  1. CAPECITABINE. [Suspect]
     Active Substance: CAPECITABINE
     Indication: COLON CANCER
     Dosage: ?          OTHER FREQUENCY:3 BID 14ON/7OFF;?
     Route: 048
     Dates: start: 20200420, end: 20200918
  2. LOPERAMIDE [Concomitant]
     Active Substance: LOPERAMIDE
  3. LEVOFLOXACIN. [Concomitant]
     Active Substance: LEVOFLOXACIN
  4. STIOLTI RESPIMAT [Concomitant]
  5. FIBER FORMULA [Concomitant]
  6. GABAPENTIN. [Concomitant]
     Active Substance: GABAPENTIN
  7. IPRATROPIUM [Concomitant]
     Active Substance: IPRATROPIUM
  8. POLYETHYLENE GLYCOL [Concomitant]
     Active Substance: POLYETHYLENE GLYCOLS
  9. VALPROIC ACID. [Concomitant]
     Active Substance: VALPROIC ACID
  10. ATORVASTATIN [Concomitant]
     Active Substance: ATORVASTATIN
  11. LOPERAMIDE [Concomitant]
     Active Substance: LOPERAMIDE
  12. LEVOCARNITINE. [Concomitant]
     Active Substance: LEVOCARNITINE
  13. VITAMIN B COMPLEX C [Concomitant]
  14. PROCHLORPERAZINE. [Concomitant]
     Active Substance: PROCHLORPERAZINE
  15. OSELTAMIVIR [Concomitant]
     Active Substance: OSELTAMIVIR
  16. PANTOPRAZOLE [Concomitant]
     Active Substance: PANTOPRAZOLE
  17. ASPIRIN. [Concomitant]
     Active Substance: ASPIRIN
  18. FOLIC ACID. [Concomitant]
     Active Substance: FOLIC ACID
  19. MULTIVITAMINS [Concomitant]
     Active Substance: VITAMINS
  20. KEPPRA [Concomitant]
     Active Substance: LEVETIRACETAM

REACTIONS (1)
  - Palmar-plantar erythrodysaesthesia syndrome [None]

NARRATIVE: CASE EVENT DATE: 20200918
